FAERS Safety Report 4518872-9 (Version None)
Quarter: 2004Q4

REPORT INFORMATION
  Report Type: 
  Country: None (occurrence: None)
  Receive Date: 20041206
  Receipt Date: 20041124
  Transmission Date: 20050328
  Serious: Yes (Other)
  Sender: FDA-Public Use
  Company Number: JP-BRISTOL-MYERS SQUIBB COMPANY-12776357

PATIENT
  Age: 32 Year
  Sex: Male

DRUGS (1)
  1. KENACORT-A INJ [Suspect]
     Indication: DIABETIC RETINOPATHY
     Route: 031
     Dates: start: 20040127, end: 20040127

REACTIONS (1)
  - ENDOPHTHALMITIS [None]
